FAERS Safety Report 4673598-6 (Version None)
Quarter: 2005Q2

REPORT INFORMATION
  Report Type: 
  Country: None (occurrence: None)
  Receive Date: 20050525
  Receipt Date: 20050523
  Transmission Date: 20051028
  Serious: Yes (Death, Hospitalization)
  Sender: FDA-Public Use
  Company Number: PHRM2005FR01592

PATIENT
  Age: 44 Year
  Sex: Female

DRUGS (11)
  1. DESFERAL [Suspect]
     Indication: HAEMOCHROMATOSIS
     Route: 058
     Dates: start: 20050302, end: 20050329
  2. STILNOX [Concomitant]
     Route: 048
  3. SPECIAFOLDINE [Concomitant]
     Route: 048
  4. DIFFU K [Concomitant]
     Route: 048
  5. GRANOCYTE ^CHUGAI^ [Suspect]
     Route: 042
     Dates: start: 20041207, end: 20041224
  6. LEVOTHYROX [Concomitant]
     Route: 048
  7. OFLOCET [Concomitant]
  8. ORELOX [Concomitant]
     Route: 048
  9. AUGMENTIN '125' [Concomitant]
  10. FLUIMUCIL [Concomitant]
  11. METHERGINE [Suspect]
     Indication: METRORRHAGIA
     Route: 048
     Dates: start: 20050225, end: 20050304

REACTIONS (16)
  - ACUTE RESPIRATORY DISTRESS SYNDROME [None]
  - CIRCULATORY COLLAPSE [None]
  - COUGH [None]
  - DYSPNOEA [None]
  - HYPERTHERMIA [None]
  - HYPOXIA [None]
  - INFLAMMATION [None]
  - INFLUENZA SEROLOGY POSITIVE [None]
  - INTERSTITIAL LUNG DISEASE [None]
  - INTUBATION [None]
  - LIFE SUPPORT [None]
  - LUNG INFILTRATION [None]
  - MULTI-ORGAN FAILURE [None]
  - PYREXIA [None]
  - RESPIRATORY FAILURE [None]
  - TACHYPNOEA [None]
